FAERS Safety Report 24712176 (Version 2)
Quarter: 2024Q4

REPORT INFORMATION
  Report Type: Spontaneous
  Country: SI (occurrence: SI)
  Receive Date: 20241209
  Receipt Date: 20241211
  Transmission Date: 20250114
  Serious: Yes (Other)
  Sender: ALEXION PHARMACEUTICALS
  Company Number: SI-Covis Pharma Europe B.V.-2024COV01401

PATIENT
  Age: 33 Year

DRUGS (38)
  1. BUDESONIDE\FORMOTEROL [Suspect]
     Active Substance: BUDESONIDE\FORMOTEROL
     Dosage: 160/4.5 MCG AS NEEDED
     Route: 065
  2. BUDESONIDE\FORMOTEROL [Suspect]
     Active Substance: BUDESONIDE\FORMOTEROL
     Dosage: 160/4.5 MCG AS NEEDED
     Route: 065
  3. BUDESONIDE\FORMOTEROL [Suspect]
     Active Substance: BUDESONIDE\FORMOTEROL
     Dosage: 160/4.5 MCG AS NEEDED
     Route: 065
  4. BUDESONIDE\FORMOTEROL [Suspect]
     Active Substance: BUDESONIDE\FORMOTEROL
     Dosage: 160/4.5 MCG AS NEEDED
     Route: 065
  5. CICLESONIDE [Suspect]
     Active Substance: CICLESONIDE
     Indication: Asthma
     Dosage: 1 DOSAGE FORM, QD
  6. CICLESONIDE [Suspect]
     Active Substance: CICLESONIDE
     Dosage: 1 DOSAGE FORM, QD
  7. CICLESONIDE [Suspect]
     Active Substance: CICLESONIDE
     Dosage: 1 DOSAGE FORM, QD
  8. CICLESONIDE [Suspect]
     Active Substance: CICLESONIDE
     Dosage: 1 DOSAGE FORM, QD
  9. CICLESONIDE [Suspect]
     Active Substance: CICLESONIDE
     Dosage: 2X1 INHALATION AS NEEDED
  10. CICLESONIDE [Suspect]
     Active Substance: CICLESONIDE
     Dosage: 2X1 INHALATION AS NEEDED
  11. CICLESONIDE [Suspect]
     Active Substance: CICLESONIDE
     Dosage: 2X1 INHALATION AS NEEDED
  12. CICLESONIDE [Suspect]
     Active Substance: CICLESONIDE
     Dosage: 2X1 INHALATION AS NEEDED
  13. CICLESONIDE [Suspect]
     Active Substance: CICLESONIDE
     Dosage: 2 DOSAGE FORM, Q12H
  14. CICLESONIDE [Suspect]
     Active Substance: CICLESONIDE
     Dosage: 2 DOSAGE FORM, Q12H
  15. CICLESONIDE [Suspect]
     Active Substance: CICLESONIDE
     Dosage: 2 DOSAGE FORM, Q12H
  16. CICLESONIDE [Suspect]
     Active Substance: CICLESONIDE
     Dosage: 2 DOSAGE FORM, Q12H
  17. ALBUTEROL [Suspect]
     Active Substance: ALBUTEROL
     Dosage: AS NEEDED
     Route: 065
  18. ALBUTEROL [Suspect]
     Active Substance: ALBUTEROL
     Dosage: AS NEEDED
     Route: 065
  19. ALBUTEROL [Suspect]
     Active Substance: ALBUTEROL
     Dosage: AS NEEDED
     Route: 065
  20. ALBUTEROL [Suspect]
     Active Substance: ALBUTEROL
     Dosage: AS NEEDED
     Route: 065
  21. FLUTICASONE FUROATE [Suspect]
     Active Substance: FLUTICASONE FUROATE
     Dosage: 92/22MCG
     Route: 065
  22. FLUTICASONE FUROATE [Suspect]
     Active Substance: FLUTICASONE FUROATE
     Dosage: 92/22MCG
     Route: 065
  23. FLUTICASONE FUROATE [Suspect]
     Active Substance: FLUTICASONE FUROATE
     Dosage: 92/22MCG
     Route: 065
  24. FLUTICASONE FUROATE [Suspect]
     Active Substance: FLUTICASONE FUROATE
     Dosage: 92/22MCG
     Route: 065
  25. FLUTICASONE [Suspect]
     Active Substance: FLUTICASONE
     Dosage: 250 MCG 2X1 INHALATION
     Route: 065
  26. FLUTICASONE [Suspect]
     Active Substance: FLUTICASONE
     Dosage: 250 MCG 2X1 INHALATION
     Route: 065
  27. FLUTICASONE [Suspect]
     Active Substance: FLUTICASONE
     Dosage: 250 MCG 2X1 INHALATION
     Route: 065
  28. FLUTICASONE [Suspect]
     Active Substance: FLUTICASONE
     Dosage: 250 MCG 2X1 INHALATION
     Route: 065
  29. FLUTICASONE [Suspect]
     Active Substance: FLUTICASONE
     Dosage: 125 MCG 1 INHALATION PER DAY.
  30. FLUTICASONE [Suspect]
     Active Substance: FLUTICASONE
     Dosage: 125 MCG 1 INHALATION PER DAY.
  31. MOMETASONE [Suspect]
     Active Substance: MOMETASONE
     Dosage: MOMETASONE SPRAY 2X1 PUFF IN EACH NOSTRIL
     Route: 065
  32. MOMETASONE [Suspect]
     Active Substance: MOMETASONE
     Dosage: MOMETASONE SPRAY 2X1 PUFF IN EACH NOSTRIL
     Route: 065
  33. OLOPATADINE [Suspect]
     Active Substance: OLOPATADINE
     Dosage: AS NEEDED
  34. OLOPATADINE [Suspect]
     Active Substance: OLOPATADINE
     Dosage: AS NEEDED
  35. DESLORATADINE [Suspect]
     Active Substance: DESLORATADINE
     Dosage: 1 DOSAGE FORM, QD
     Route: 065
  36. DESLORATADINE [Suspect]
     Active Substance: DESLORATADINE
     Dosage: 1 DOSAGE FORM, QD
     Route: 065
  37. AZITHROMYCIN [Suspect]
     Active Substance: AZITHROMYCIN
  38. FENOTEROL HYDROBROMIDE\IPRATROPIUM BROMIDE [Concomitant]
     Active Substance: FENOTEROL HYDROBROMIDE\IPRATROPIUM BROMIDE

REACTIONS (15)
  - Asthma [Unknown]
  - Chest discomfort [Unknown]
  - Cough [Unknown]
  - Vertigo [Unknown]
  - Productive cough [Unknown]
  - Dust allergy [Unknown]
  - Seasonal allergy [Unknown]
  - Allergy to animal [Unknown]
  - Ear discomfort [Unknown]
  - Infection [Unknown]
  - Chest pain [Unknown]
  - Cough [Unknown]
  - Wheezing [Unknown]
  - Asthma [Unknown]
  - Dyspnoea exertional [Unknown]
